FAERS Safety Report 5831719-3 (Version None)
Quarter: 2008Q3

REPORT INFORMATION
  Report Type: 
  Country: None (occurrence: None)
  Receive Date: 20080803
  Receipt Date: 20080723
  Transmission Date: 20090109
  Serious: Yes (Disabling)
  Sender: FDA-Public Use
  Company Number: PHHY2008IT15151

PATIENT
  Sex: Female

DRUGS (3)
  1. ZOMETA [Suspect]
     Indication: METASTASES TO BONE
     Dosage: 4 MG, QMO
     Route: 042
     Dates: start: 20050101, end: 20071201
  2. DOCETAXEL [Concomitant]
     Indication: BREAST CANCER STAGE IV
  3. ADRIBLASTINA [Concomitant]
     Indication: BREAST CANCER STAGE IV

REACTIONS (1)
  - OSTEONECROSIS [None]
